FAERS Safety Report 14127626 (Version 2)
Quarter: 2017Q4

REPORT INFORMATION
  Report Type: Spontaneous
  Country: MA (occurrence: MA)
  Receive Date: 20171026
  Receipt Date: 20171129
  Transmission Date: 20180321
  Serious: Yes (Death, Other)
  Sender: FDA-Public Use
  Company Number: MA-009507513-1710MAR011280

PATIENT
  Age: 52 Year
  Sex: Female

DRUGS (1)
  1. PEMBROLIZUMAB. [Suspect]
     Active Substance: PEMBROLIZUMAB
     Indication: OVARIAN CANCER
     Dosage: UNK, RECEIVED 3 COURSES

REACTIONS (3)
  - Therapy non-responder [Unknown]
  - Malignant neoplasm progression [Fatal]
  - Product use in unapproved indication [Unknown]
